FAERS Safety Report 14733509 (Version 1)
Quarter: 2018Q2

REPORT INFORMATION
  Report Type: Spontaneous
  Country: US (occurrence: US)
  Receive Date: 20180409
  Receipt Date: 20180409
  Transmission Date: 20180711
  Serious: Yes (Death, Other)
  Sender: FDA-Public Use
  Company Number: US-ASTELLAS-2018US016833

PATIENT
  Sex: Male

DRUGS (1)
  1. XTANDI [Suspect]
     Active Substance: ENZALUTAMIDE
     Indication: PROSTATE CANCER
     Route: 048
     Dates: start: 20180329

REACTIONS (6)
  - Death [Fatal]
  - Psychotic disorder [Unknown]
  - Neoplasm malignant [Unknown]
  - Gait disturbance [Unknown]
  - Mobility decreased [Unknown]
  - Muscular weakness [Unknown]
